FAERS Safety Report 25120578 (Version 1)
Quarter: 2025Q1

REPORT INFORMATION
  Report Type: Spontaneous
  Country: US (occurrence: US)
  Receive Date: 20250325
  Receipt Date: 20250325
  Transmission Date: 20250409
  Serious: Yes (Death, Other)
  Sender: MALLINCKRODT
  Company Number: US-MALLINCKRODT-MNK202501772

PATIENT
  Age: 60 Year
  Sex: Male

DRUGS (4)
  1. NITRIC OXIDE [Suspect]
     Active Substance: NITRIC OXIDE
     Indication: Product used for unknown indication
     Route: 055
  2. DOBUTAMINE [Concomitant]
     Active Substance: DOBUTAMINE HYDROCHLORIDE
  3. NOREPINEPHRINE [Concomitant]
     Active Substance: NOREPINEPHRINE
  4. VASOPRESSIN [Concomitant]
     Active Substance: VASOPRESSIN

REACTIONS (8)
  - Death [Fatal]
  - Shock [Unknown]
  - Sepsis [Unknown]
  - Pneumonia [Unknown]
  - Right ventricular dysfunction [Unknown]
  - Condition aggravated [Unknown]
  - Multiple organ dysfunction syndrome [Unknown]
  - Product use issue [Unknown]
